FAERS Safety Report 5843108-6 (Version None)
Quarter: 2008Q3

REPORT INFORMATION
  Report Type: 
  Country: None (occurrence: None)
  Receive Date: 20080812
  Receipt Date: 20080812
  Transmission Date: 20090109
  Serious: Yes (Hospitalization)
  Sender: FDA-Public Use
  Company Number: None

PATIENT
  Age: 52 Year
  Sex: Male
  Weight: 126 kg

DRUGS (16)
  1. ASPARAGINASE 5000UNITS/ML OVATION [Suspect]
     Indication: ACUTE LYMPHOCYTIC LEUKAEMIA
     Dosage: 10000UNITS/2ML Q 24 HOURS IM
     Route: 030
     Dates: start: 20080713, end: 20080721
  2. VORICONAZOLE 200MG PFIZER [Suspect]
     Indication: FUNGAL INFECTION
     Dosage: 200MG BID PO
     Route: 048
     Dates: start: 20080705, end: 20080722
  3. NEXIUM [Concomitant]
  4. PRAVASTATIN [Concomitant]
  5. AMLODIPINE [Concomitant]
  6. HEPARIN [Concomitant]
  7. ALLOPURINOL [Concomitant]
  8. ACYCLOVIR [Concomitant]
  9. PREDNISONE [Concomitant]
  10. LEVOFLOXACIN [Concomitant]
  11. DAPSONE [Concomitant]
  12. LISINOPRIL [Concomitant]
  13. LEXAPRO [Concomitant]
  14. XANAX [Concomitant]
  15. RESTORIL [Concomitant]
  16. ANIDULAFUNGIN [Concomitant]

REACTIONS (4)
  - ALANINE AMINOTRANSFERASE INCREASED [None]
  - ASPARTATE AMINOTRANSFERASE INCREASED [None]
  - BLOOD BILIRUBIN INCREASED [None]
  - JAUNDICE [None]
